FAERS Safety Report 20744424 (Version 5)
Quarter: 2024Q4

REPORT INFORMATION
  Report Type: Report from Study
  Country: CA (occurrence: CA)
  Receive Date: 20220425
  Receipt Date: 20241126
  Transmission Date: 20250115
  Serious: Yes (Other)
  Sender: TAKEDA
  Company Number: CA-TAKEDA-2022TUS027101

PATIENT
  Age: 44 Year
  Sex: Female

DRUGS (12)
  1. VEDOLIZUMAB [Suspect]
     Active Substance: VEDOLIZUMAB
     Indication: Crohn^s disease
     Dosage: 300 MILLIGRAM
  2. VEDOLIZUMAB [Suspect]
     Active Substance: VEDOLIZUMAB
     Dosage: 300 MILLIGRAM, Q4WEEKS
     Dates: start: 20180616
  3. VEDOLIZUMAB [Suspect]
     Active Substance: VEDOLIZUMAB
     Dosage: 300 MILLIGRAM, Q4WEEKS
  4. VEDOLIZUMAB [Suspect]
     Active Substance: VEDOLIZUMAB
     Dosage: 300 MILLIGRAM, Q4WEEKS
  5. VEDOLIZUMAB [Suspect]
     Active Substance: VEDOLIZUMAB
     Dosage: 300 MILLIGRAM, Q4WEEKS
  6. Statex [Concomitant]
     Dosage: 5 MILLIGRAM
  7. XALATAN [Concomitant]
     Active Substance: LATANOPROST
     Indication: Glaucoma
     Dosage: UNK UNK, QD
  8. ALESSE 28 [Concomitant]
     Active Substance: ETHINYL ESTRADIOL\LEVONORGESTREL
     Indication: Contraception
     Dosage: UNK
  9. RANITIDINE [Concomitant]
     Active Substance: RANITIDINE
     Dosage: UNK
  10. EBASTINE [Concomitant]
     Active Substance: EBASTINE
     Dosage: UNK
  11. ALBUTEROL [Concomitant]
     Active Substance: ALBUTEROL
     Dosage: UNK
  12. HERBALS\TURMERIC [Concomitant]
     Active Substance: HERBALS\TURMERIC
     Dosage: UNK UNK, QD

REACTIONS (6)
  - Colorectal cancer stage IV [Unknown]
  - Metastases to lymph nodes [Unknown]
  - Metastases to liver [Unknown]
  - Intestinal perforation [Unknown]
  - Malaise [Unknown]
  - Off label use [Unknown]

NARRATIVE: CASE EVENT DATE: 20180616
